FAERS Safety Report 18165294 (Version 1)
Quarter: 2020Q3

REPORT INFORMATION
  Report Type: Spontaneous
  Country: ZA (occurrence: ZA)
  Receive Date: 20200818
  Receipt Date: 20200818
  Transmission Date: 20201103
  Serious: Yes (Hospitalization, Other)
  Sender: FDA-Public Use
  Company Number: NVSC2020ZA224914

PATIENT
  Sex: Female

DRUGS (1)
  1. KRYXANA [Suspect]
     Active Substance: RIBOCICLIB
     Indication: PRODUCT USED FOR UNKNOWN INDICATION
     Dosage: 600 MG, QD
     Route: 048
     Dates: start: 20200806

REACTIONS (2)
  - Hypoglycaemia [Recovering/Resolving]
  - Diabetic coma [Unknown]

NARRATIVE: CASE EVENT DATE: 20200806
